FAERS Safety Report 18272956 (Version 1)
Quarter: 2020Q3

REPORT INFORMATION
  Report Type: Spontaneous
  Country: GB (occurrence: GB)
  Receive Date: 20200916
  Receipt Date: 20200916
  Transmission Date: 20201103
  Serious: Yes (Hospitalization)
  Sender: FDA-Public Use
  Company Number: GB-ACCORD-201137

PATIENT
  Age: 32 Year
  Sex: Male
  Weight: 100 kg

DRUGS (5)
  1. TACROLIMUS. [Interacting]
     Active Substance: TACROLIMUS
     Indication: PRODUCT USED FOR UNKNOWN INDICATION
     Dosage: 2MG MORNING, 1MG AFTERNOON
  2. CHLORAMPHENICOL [Concomitant]
     Active Substance: CHLORAMPHENICOL
     Dates: start: 20190208
  3. CLARITHROMYCIN/CLARITHROMYCIN LACTOBIONATE [Suspect]
     Active Substance: CLARITHROMYCIN LACTOBIONATE
     Indication: EYE INFECTION BACTERIAL
     Route: 048
     Dates: start: 20190208, end: 20190215
  4. PREDNISOLONE. [Concomitant]
     Active Substance: PREDNISOLONE
  5. MYCOPHENOLIC ACID. [Concomitant]
     Active Substance: MYCOPHENOLIC ACID

REACTIONS (7)
  - Labelled drug-drug interaction medication error [Unknown]
  - Diarrhoea [Unknown]
  - Acute kidney injury [Unknown]
  - Potentiating drug interaction [Unknown]
  - Hyperkalaemia [Unknown]
  - Nephropathy toxic [Unknown]
  - Blood creatinine increased [Recovered/Resolved]

NARRATIVE: CASE EVENT DATE: 201902
